FAERS Safety Report 8947607 (Version 1)
Quarter: 2012Q4

REPORT INFORMATION
  Report Type: Report from Study
  Country: ZA (occurrence: ZA)
  Receive Date: 20121205
  Receipt Date: 20121205
  Transmission Date: 20130627
  Serious: Yes (Death)
  Sender: FDA-Public Use
  Company Number: ZA-ROCHE-1161880

PATIENT
  Age: 24 Year
  Sex: Female

DRUGS (2)
  1. EPOETIN BETA [Suspect]
     Indication: NEPHROGENIC ANAEMIA
     Route: 065
     Dates: start: 201108, end: 201211
  2. METHOXY POLYETHYLENE GLYCOL-EPOETIN BETA [Suspect]
     Indication: NEPHROGENIC ANAEMIA
     Route: 065
     Dates: start: 201106

REACTIONS (2)
  - Multi-organ failure [Fatal]
  - Myocardial infarction [Fatal]
